FAERS Safety Report 12060737 (Version 1)
Quarter: 2016Q1

REPORT INFORMATION
  Report Type: Spontaneous
  Country: FR (occurrence: FR)
  Receive Date: 20160210
  Receipt Date: 20160210
  Transmission Date: 20160526
  Serious: Yes (Hospitalization, Other)
  Sender: FDA-Public Use
  Company Number: FR-ASTRAZENECA-2016SE12364

PATIENT
  Age: 29021 Day
  Sex: Female

DRUGS (7)
  1. GLUCOPHAGE [Concomitant]
     Active Substance: METFORMIN HYDROCHLORIDE
  2. BRILIQUE [Suspect]
     Active Substance: TICAGRELOR
     Route: 048
     Dates: start: 201411, end: 20151003
  3. CANDESARTAN [Concomitant]
     Active Substance: CANDESARTAN
  4. ESIDREX [Concomitant]
     Active Substance: HYDROCHLOROTHIAZIDE
  5. INEXIUM [Concomitant]
     Active Substance: ESOMEPRAZOLE
  6. KARDEGIC [Interacting]
     Active Substance: ASPIRIN LYSINE
     Route: 048
     Dates: start: 201411, end: 20151003
  7. KARDEGIC [Interacting]
     Active Substance: ASPIRIN LYSINE
     Route: 048
     Dates: start: 20151006

REACTIONS (6)
  - Anaemia [Recovered/Resolved]
  - Duodenal polyp [Unknown]
  - Drug interaction [Unknown]
  - Melaena [Recovered/Resolved]
  - Abdominal pain [Unknown]
  - Haematemesis [Recovered/Resolved]

NARRATIVE: CASE EVENT DATE: 20151002
